FAERS Safety Report 10402359 (Version 1)
Quarter: 2014Q3

REPORT INFORMATION
  Report Type: Spontaneous
  Country: US (occurrence: None)
  Receive Date: 20140820
  Receipt Date: 20140820
  Transmission Date: 20150326
  Serious: Yes (Hospitalization)
  Sender: FDA-Public Use
  Company Number: None

PATIENT
  Age: 14 Year
  Sex: Male
  Weight: 49.9 kg

DRUGS (14)
  1. MYLANTA [Concomitant]
     Active Substance: ALUMINUM HYDROXIDE\MAGNESIUM HYDROXIDE\SIMETHICONE
  2. MELATONIN [Concomitant]
     Active Substance: MELATONIN
  3. OLANZAPINE. [Suspect]
     Active Substance: OLANZAPINE
     Indication: AFFECTIVE DISORDER
     Dosage: 1 PILLS QD ORAL
     Route: 048
     Dates: start: 20140809, end: 20140810
  4. CITALOPRAM [Concomitant]
     Active Substance: CITALOPRAM HYDROBROMIDE
  5. OLANZAPINE. [Suspect]
     Active Substance: OLANZAPINE
     Indication: AFFECTIVE DISORDER
     Dosage: 2 PILLS QD ORAL
     Route: 048
     Dates: start: 20140809, end: 20140810
  6. OLANZAPINE. [Suspect]
     Active Substance: OLANZAPINE
     Indication: PSYCHOTIC DISORDER
     Dosage: 2 PILLS QD ORAL
     Route: 048
     Dates: start: 20140809, end: 20140810
  7. CLONIDINE. [Concomitant]
     Active Substance: CLONIDINE
  8. DIPHENHYDRAMINE [Concomitant]
     Active Substance: DIPHENHYDRAMINE
  9. ACETAMINOPHEN. [Concomitant]
     Active Substance: ACETAMINOPHEN
  10. VYVANSE [Concomitant]
     Active Substance: LISDEXAMFETAMINE DIMESYLATE
  11. OLANZAPINE. [Suspect]
     Active Substance: OLANZAPINE
     Indication: PSYCHOTIC DISORDER
     Dosage: 1 PILLS QD ORAL
     Route: 048
     Dates: start: 20140809, end: 20140810
  12. MOM [Concomitant]
     Active Substance: MAGNESIUM HYDROXIDE
  13. LORATADINE. [Concomitant]
     Active Substance: LORATADINE
  14. RISPERDONE 4MG 1 HS [Concomitant]
     Active Substance: RISPERIDONE

REACTIONS (8)
  - Convulsion [None]
  - Heart rate increased [None]
  - Musculoskeletal stiffness [None]
  - Abdominal pain upper [None]
  - Pain [None]
  - Fall [None]
  - Hyperhidrosis [None]
  - Dizziness [None]

NARRATIVE: CASE EVENT DATE: 20140810
